FAERS Safety Report 12013172 (Version 2)
Quarter: 2017Q1

REPORT INFORMATION
  Report Type: Spontaneous
  Country: US (occurrence: US)
  Receive Date: 20160205
  Receipt Date: 20170202
  Transmission Date: 20170428
  Serious: Yes (Hospitalization, Other)
  Sender: FDA-Public Use
  Company Number: US-JNJFOC-20160122377

PATIENT
  Age: 52 Year
  Sex: Male
  Weight: 102.06 kg

DRUGS (15)
  1. IVERMECTIN. [Concomitant]
     Active Substance: IVERMECTIN
     Dosage: 6 TABLETS BY MOUTH ONCE REPEAT IN 2 WEEKS
     Route: 048
     Dates: start: 20150707
  2. HUMIRA [Suspect]
     Active Substance: ADALIMUMAB
     Indication: PSORIASIS
     Route: 058
     Dates: start: 20150225, end: 201507
  3. OTEZLA [Concomitant]
     Active Substance: APREMILAST
     Indication: PSORIASIS
     Route: 065
  4. AMOXICILLIN AND CLAVULANATE POTASSIUM [Concomitant]
     Active Substance: AMOXICILLIN\CLAVULANATE POTASSIUM
     Dosage: 875 - 125 MG FOR 10 DAYS
     Route: 048
     Dates: start: 20151005
  5. STELARA [Suspect]
     Active Substance: USTEKINUMAB
     Indication: PRODUCT USED FOR UNKNOWN INDICATION
     Route: 058
     Dates: start: 20150729, end: 20150729
  6. HUMIRA [Suspect]
     Active Substance: ADALIMUMAB
     Indication: PSORIASIS
     Dosage: PREFILLED PEN. LOADING DOSE 8-2
     Route: 058
     Dates: start: 20150218, end: 20150218
  7. CLOBETASOL [Concomitant]
     Active Substance: CLOBETASOL
     Dosage: APPLY FOR EFFECTED AREA FOR TWO TO 4 WEEKS 0.05 %
     Route: 065
     Dates: start: 20151123
  8. CLOBETASOL [Concomitant]
     Active Substance: CLOBETASOL
     Dosage: SPARY UP TO 3 WEEKS THEN OFF FOR 10 DAYS
     Route: 065
     Dates: start: 20151006
  9. PERMETHRIN. [Concomitant]
     Active Substance: PERMETHRIN
     Dosage: MASSAGE INTO SKIN FROM HEAD TO SOLES OF FEET, WASH OFF AFTER 8 TO 14 HRS
     Dates: start: 20150622
  10. DOXYCYCLINE HYCLATE. [Concomitant]
     Active Substance: DOXYCYCLINE HYCLATE
     Route: 048
     Dates: start: 20150916
  11. TRIAMCINOLONE [Concomitant]
     Active Substance: TRIAMCINOLONE
     Dosage: APPLY TO EFFECTED AREA TWICE A DAY TO THREE TIMES A DAY
     Route: 065
     Dates: start: 20150707
  12. PREDNISONE. [Concomitant]
     Active Substance: PREDNISONE
     Route: 048
     Dates: start: 20150624
  13. CLINDAMYCIN HCL [Concomitant]
     Active Substance: CLINDAMYCIN HYDROCHLORIDE
     Route: 048
     Dates: start: 20160106
  14. TRIAMCINOLONE [Concomitant]
     Active Substance: TRIAMCINOLONE
     Route: 065
     Dates: start: 20151222
  15. TRAMADOL HCL [Concomitant]
     Active Substance: TRAMADOL HYDROCHLORIDE
     Indication: PAIN
     Dosage: IF NEDED
     Route: 048
     Dates: start: 20150916

REACTIONS (9)
  - Cellulitis [Recovering/Resolving]
  - Psoriatic arthropathy [Not Recovered/Not Resolved]
  - Depression [Unknown]
  - Psoriasis [Not Recovered/Not Resolved]
  - Pyoderma gangrenosum [Not Recovered/Not Resolved]
  - Joint range of motion decreased [Not Recovered/Not Resolved]
  - Blood pressure increased [Not Recovered/Not Resolved]
  - Emotional distress [Unknown]
  - Rheumatoid factor increased [Not Recovered/Not Resolved]

NARRATIVE: CASE EVENT DATE: 2015
